FAERS Safety Report 5583211-1 (Version None)
Quarter: 2008Q1

REPORT INFORMATION
  Report Type: 
  Country: None (occurrence: None)
  Receive Date: 20080107
  Receipt Date: 20071226
  Transmission Date: 20080703
  Serious: Yes (Hospitalization)
  Sender: FDA-Public Use
  Company Number: FR-SANOFI-SYNTHELABO-A02200703942

PATIENT
  Age: 89 Year
  Sex: Female

DRUGS (6)
  1. CALCIPARINE [Concomitant]
     Indication: DRUG USE FOR UNKNOWN INDICATION
     Dosage: 0.4 ML
     Route: 058
     Dates: start: 20070801, end: 20070824
  2. DEROXAT [Concomitant]
     Indication: DRUG USE FOR UNKNOWN INDICATION
     Dosage: UNK
     Route: 048
  3. INIPOMP [Concomitant]
     Indication: DRUG USE FOR UNKNOWN INDICATION
     Dosage: UNK
     Route: 048
  4. XATRAL [Suspect]
     Indication: BLADDER CATHETERISATION
     Dosage: UNK
     Route: 048
     Dates: start: 20070813, end: 20070827
  5. EFFERALGAN CODEINE [Concomitant]
     Indication: DRUG USE FOR UNKNOWN INDICATION
     Dosage: 6 UNIT
     Route: 048
  6. ROCEPHIN [Suspect]
     Indication: URINARY TRACT INFECTION
     Dosage: 1 G
     Route: 042
     Dates: start: 20070810, end: 20070820

REACTIONS (1)
  - LEUKOPENIA [None]
